FAERS Safety Report 8884702 (Version 1)
Quarter: 2012Q4

REPORT INFORMATION
  Report Type: 
  Country: US (occurrence: US)
  Receive Date: 20121105
  Receipt Date: 20121105
  Transmission Date: 20130627
  Serious: No
  Sender: FDA-Public Use
  Company Number: US-BAYER-2012-114930

PATIENT

DRUGS (3)
  1. BAYER GENUINE ASPIRIN ORIGINAL STRENGTH [Suspect]
     Indication: SINUS HEADACHE
     Dosage: 3 DF, UNK
  2. ALEVE CAPLET/TABLET,MIDOL EXTENDED RELIEF CAPLET [Suspect]
     Indication: SINUS HEADACHE
     Dosage: 2 DF, UNK
  3. ANTIBIOTICS [Concomitant]

REACTIONS (1)
  - Sinus headache [None]
